FAERS Safety Report 5645993-X (Version None)
Quarter: 2008Q1

REPORT INFORMATION
  Report Type: 
  Country: None (occurrence: None)
  Receive Date: 20080227
  Receipt Date: 20080221
  Transmission Date: 20080703
  Serious: Yes (Death)
  Sender: FDA-Public Use
  Company Number: C2008-200-954

PATIENT
  Sex: Male

DRUGS (1)
  1. CEFAZOLIN [Suspect]

REACTIONS (2)
  - ENDOCARDITIS BACTERIAL [None]
  - PHARMACEUTICAL PRODUCT COMPLAINT [None]
